FAERS Safety Report 7599686-2 (Version None)
Quarter: 2011Q3

REPORT INFORMATION
  Report Type: 
  Country: None (occurrence: None)
  Receive Date: 20110711
  Receipt Date: 20110627
  Transmission Date: 20111222
  Serious: Yes (Other)
  Sender: FDA-Public Use
  Company Number: CA-ELI_LILLY_AND_COMPANY-CA201106007493

PATIENT
  Sex: Male

DRUGS (10)
  1. ZYPREXA [Suspect]
     Dosage: 10 MG, EACH EVENING
  2. LITHIUM [Concomitant]
  3. SEROQUEL [Concomitant]
  4. CLONAZEPAM [Concomitant]
  5. ZYPREXA [Suspect]
     Indication: BIPOLAR DISORDER
     Dosage: 5 MG, UNK
     Dates: start: 20050210
  6. ZYPREXA [Suspect]
     Dosage: 10 MG, EACH EVENING
  7. ZYPREXA [Suspect]
     Dosage: 20 MG, EACH EVENING
  8. VALPROATE SODIUM [Concomitant]
  9. RISPERIDONE [Concomitant]
  10. ZYPREXA [Suspect]
     Dosage: 2.5 MG, EACH EVENING

REACTIONS (8)
  - RENAL IMPAIRMENT [None]
  - WEIGHT INCREASED [None]
  - THINKING ABNORMAL [None]
  - MEMORY IMPAIRMENT [None]
  - DIABETES MELLITUS [None]
  - ASTHENIA [None]
  - DISTURBANCE IN ATTENTION [None]
  - LETHARGY [None]
